FAERS Safety Report 17107456 (Version 2)
Quarter: 2020Q3

REPORT INFORMATION
  Report Type: Spontaneous
  Country: DK (occurrence: DK)
  Receive Date: 20191203
  Receipt Date: 20200721
  Transmission Date: 20201102
  Serious: Yes (Other)
  Sender: FDA-Public Use
  Company Number: NVSC2019DK051047

PATIENT
  Age: 53 Year
  Sex: Male

DRUGS (2)
  1. COSENTYX [Suspect]
     Active Substance: SECUKINUMAB
     Indication: ANKYLOSING SPONDYLITIS
     Dosage: 150 MG
     Route: 058
     Dates: start: 20190626, end: 201909
  2. VIBEDEN [Concomitant]
     Indication: VITAMIN B12 DEFICIENCY
     Dosage: 1 MG, Q3MO
     Route: 065
     Dates: start: 20181113

REACTIONS (11)
  - Dizziness [Not Recovered/Not Resolved]
  - Poor quality sleep [Not Recovered/Not Resolved]
  - Muscle spasms [Not Recovered/Not Resolved]
  - Ocular hyperaemia [Unknown]
  - Feeling cold [Unknown]
  - Paraesthesia [Not Recovered/Not Resolved]
  - Vision blurred [Unknown]
  - Sensory disturbance [Not Recovered/Not Resolved]
  - Headache [Unknown]
  - Polyneuropathy [Not Recovered/Not Resolved]
  - Pain [Not Recovered/Not Resolved]

NARRATIVE: CASE EVENT DATE: 201506
